FAERS Safety Report 20439877 (Version 1)
Quarter: 2022Q1

REPORT INFORMATION
  Report Type: Spontaneous
  Country: US (occurrence: US)
  Receive Date: 20220207
  Receipt Date: 20220207
  Transmission Date: 20220423
  Serious: Yes (Other)
  Sender: FDA-Public Use
  Company Number: US-ABBVIE-22K-163-4266628-00

PATIENT
  Age: 54 Year
  Sex: Female
  Weight: 86.18 kg

DRUGS (4)
  1. PAXLOVID [Suspect]
     Active Substance: NIRMATRELVIR\RITONAVIR
     Indication: COVID-19
     Dosage: ONE PILLS IN THE MORNING AND THEN ONE PILLS AT NIGHT
     Route: 065
  2. PAXLOVID [Suspect]
     Active Substance: NIRMATRELVIR\RITONAVIR
     Indication: COVID-19
     Dosage: TWO PILLS IN THE MORNING AND THEN TWO PILLS AT NIGHT
     Route: 065
  3. JANUVIA [Concomitant]
     Active Substance: SITAGLIPTIN PHOSPHATE
     Indication: Product used for unknown indication
  4. REPAGLINIDE [Concomitant]
     Active Substance: REPAGLINIDE
     Indication: Product used for unknown indication

REACTIONS (4)
  - Blood glucose increased [Recovering/Resolving]
  - Headache [Recovering/Resolving]
  - Drug ineffective [Recovering/Resolving]
  - Oropharyngeal pain [Recovering/Resolving]
